FAERS Safety Report 16329798 (Version 1)
Quarter: 2019Q2

REPORT INFORMATION
  Report Type: Spontaneous
  Country: US (occurrence: US)
  Receive Date: 20190411
  Receipt Date: 20190411
  Transmission Date: 20190711
  Serious: Yes (Disabling)
  Sender: FDA-Public Use
  Company Number: None

PATIENT
  Age: 78 Year
  Sex: Male
  Weight: 106.14 kg

DRUGS (5)
  1. VITAMIN B12 [Concomitant]
     Active Substance: CYANOCOBALAMIN
  2. XARELTO [Suspect]
     Active Substance: RIVAROXABAN
     Indication: ANTICOAGULANT THERAPY
     Dosage: ?          QUANTITY:14 DF DOSAGE FORM;?
     Route: 048
     Dates: start: 201811
  3. LISINOPRIL. [Concomitant]
     Active Substance: LISINOPRIL
  4. INSULIN [Concomitant]
     Active Substance: INSULIN NOS
  5. ASPIRIN. [Concomitant]
     Active Substance: ASPIRIN

REACTIONS (7)
  - Arthralgia [None]
  - Angina pectoris [None]
  - Back pain [None]
  - Musculoskeletal pain [None]
  - Neck pain [None]
  - Peripheral swelling [None]
  - Joint swelling [None]

NARRATIVE: CASE EVENT DATE: 20190213
